FAERS Safety Report 5069140-0 (Version None)
Quarter: 2006Q3

REPORT INFORMATION
  Report Type: 
  Country: None (occurrence: None)
  Receive Date: 20060727
  Receipt Date: 20060718
  Transmission Date: 20061208
  Serious: Yes (Hospitalization)
  Sender: FDA-Public Use
  Company Number: HQWYE715402JUN06

PATIENT
  Age: 40 Year
  Sex: Female
  Weight: 37 kg

DRUGS (3)
  1. TYGACIL [Suspect]
     Indication: STAPHYLOCOCCAL INFECTION
     Dosage: 50 MG 2X PER  1 DAY, INTRAVENOUS BOLUS
     Route: 040
     Dates: start: 20060309, end: 20060403
  2. HEPARIN [Concomitant]
  3. PROTONIX [Concomitant]

REACTIONS (10)
  - ALANINE AMINOTRANSFERASE INCREASED [None]
  - ASPARTATE AMINOTRANSFERASE INCREASED [None]
  - BLOOD ALKALINE PHOSPHATASE INCREASED [None]
  - BLOOD UREA DECREASED [None]
  - EOSINOPHIL PERCENTAGE INCREASED [None]
  - HAEMATOCRIT DECREASED [None]
  - INTERNATIONAL NORMALISED RATIO INCREASED [None]
  - LEUKOPENIA [None]
  - THROMBOCYTOPENIA [None]
  - WHITE BLOOD CELL COUNT INCREASED [None]
